FAERS Safety Report 25157028 (Version 1)
Quarter: 2025Q2

REPORT INFORMATION
  Report Type: Spontaneous
  Country: BE (occurrence: BE)
  Receive Date: 20250403
  Receipt Date: 20250403
  Transmission Date: 20250717
  Serious: Yes (Other)
  Sender: MYLAN
  Company Number: BE-SANDOZ-SDZ2025BE016048

PATIENT
  Age: 69 Year
  Sex: Male

DRUGS (24)
  1. MOXIFLOXACIN [Suspect]
     Active Substance: MOXIFLOXACIN
     Indication: Pneumonia
  2. MOXIFLOXACIN [Suspect]
     Active Substance: MOXIFLOXACIN
     Route: 048
  3. MOXIFLOXACIN [Suspect]
     Active Substance: MOXIFLOXACIN
     Route: 048
  4. MOXIFLOXACIN [Suspect]
     Active Substance: MOXIFLOXACIN
  5. ACYCLOVIR [Concomitant]
     Active Substance: ACYCLOVIR
     Indication: Herpes virus infection
  6. ACYCLOVIR [Concomitant]
     Active Substance: ACYCLOVIR
     Route: 048
  7. ACYCLOVIR [Concomitant]
     Active Substance: ACYCLOVIR
     Route: 048
  8. ACYCLOVIR [Concomitant]
     Active Substance: ACYCLOVIR
  9. ACETAZOLAMIDE [Concomitant]
     Active Substance: ACETAZOLAMIDE
     Indication: Herpes virus infection
  10. ACETAZOLAMIDE [Concomitant]
     Active Substance: ACETAZOLAMIDE
     Route: 048
  11. ACETAZOLAMIDE [Concomitant]
     Active Substance: ACETAZOLAMIDE
     Route: 048
  12. ACETAZOLAMIDE [Concomitant]
     Active Substance: ACETAZOLAMIDE
  13. TETRACYCLINE [Concomitant]
     Active Substance: TETRACYCLINE
     Indication: Herpes virus infection
  14. TETRACYCLINE [Concomitant]
     Active Substance: TETRACYCLINE
     Route: 065
  15. TETRACYCLINE [Concomitant]
     Active Substance: TETRACYCLINE
     Route: 065
  16. TETRACYCLINE [Concomitant]
     Active Substance: TETRACYCLINE
  17. METHYLPREDNISOLONE [Concomitant]
     Active Substance: METHYLPREDNISOLONE
     Indication: Product used for unknown indication
  18. METHYLPREDNISOLONE [Concomitant]
     Active Substance: METHYLPREDNISOLONE
     Route: 065
  19. METHYLPREDNISOLONE [Concomitant]
     Active Substance: METHYLPREDNISOLONE
     Route: 065
  20. METHYLPREDNISOLONE [Concomitant]
     Active Substance: METHYLPREDNISOLONE
  21. CYCLOPENTOLATE [Concomitant]
     Active Substance: CYCLOPENTOLATE
     Indication: Product used for unknown indication
  22. CYCLOPENTOLATE [Concomitant]
     Active Substance: CYCLOPENTOLATE
     Route: 065
  23. CYCLOPENTOLATE [Concomitant]
     Active Substance: CYCLOPENTOLATE
     Route: 065
  24. CYCLOPENTOLATE [Concomitant]
     Active Substance: CYCLOPENTOLATE

REACTIONS (1)
  - Iris transillumination defect [Recovering/Resolving]
